FAERS Safety Report 4571612-X (Version None)
Quarter: 2005Q1

REPORT INFORMATION
  Report Type: 
  Country: None (occurrence: None)
  Receive Date: 20050203
  Receipt Date: 20050203
  Transmission Date: 20050727
  Serious: Yes (Other)
  Sender: FDA-Public Use
  Company Number: None

PATIENT
  Age: 63 Year
  Sex: Male
  Weight: 83.0083 kg

DRUGS (9)
  1. DEXTROAMPHETAMINE [Suspect]
     Indication: NARCOLEPSY
     Dosage: 15 MG ONE BID PO
     Route: 048
     Dates: start: 20020111, end: 20020112
  2. ZOLOFT [Concomitant]
  3. PRILOSEC [Concomitant]
  4. ASPIRIN [Concomitant]
  5. AMIODARONE HCL [Concomitant]
  6. TOPROL-XL [Concomitant]
  7. LASIC [Concomitant]
  8. POTASSIUM CHLORIDE [Concomitant]
  9. LISPITOR [Concomitant]

REACTIONS (3)
  - CONDITION AGGRAVATED [None]
  - NARCOLEPSY [None]
  - PHARMACEUTICAL PRODUCT COMPLAINT [None]
